FAERS Safety Report 25396573 (Version 1)
Quarter: 2025Q2

REPORT INFORMATION
  Report Type: Spontaneous
  Country: JP (occurrence: JP)
  Receive Date: 20250604
  Receipt Date: 20250604
  Transmission Date: 20250717
  Serious: Yes (Death)
  Sender: MERCK SHARP & DOHME LLC
  Company Number: JP-MSD-2407JPN002279J

PATIENT
  Age: 47 Year
  Sex: Male

DRUGS (3)
  1. KEYTRUDA [Suspect]
     Active Substance: PEMBROLIZUMAB
     Indication: Head and neck cancer metastatic
     Route: 041
     Dates: start: 202104
  2. FLUOROURACIL [Suspect]
     Active Substance: FLUOROURACIL
     Indication: Head and neck cancer metastatic
     Route: 065
     Dates: start: 202104
  3. CISPLATIN [Suspect]
     Active Substance: CISPLATIN
     Indication: Head and neck cancer metastatic
     Route: 065
     Dates: start: 202104

REACTIONS (1)
  - Malignant neoplasm progression [Fatal]
